FAERS Safety Report 21938038 (Version 1)
Quarter: 2023Q1

REPORT INFORMATION
  Report Type: Report from Study
  Country: US (occurrence: US)
  Receive Date: 20230201
  Receipt Date: 20230201
  Transmission Date: 20230418
  Serious: No
  Sender: FDA-Public Use
  Company Number: US-INCYTE CORPORATION-2021IN007675

PATIENT

DRUGS (1)
  1. PEMIGATINIB [Suspect]
     Active Substance: PEMIGATINIB
     Indication: Cholangiocarcinoma
     Dosage: 13.5 MILLIGRAM, QD
     Route: 048
     Dates: start: 20210810

REACTIONS (15)
  - Product taste abnormal [Unknown]
  - Product odour abnormal [Unknown]
  - Gingival bleeding [Unknown]
  - Sinus congestion [Unknown]
  - Mouth ulceration [Unknown]
  - Decreased appetite [Unknown]
  - Headache [Unknown]
  - Fatigue [Unknown]
  - Nausea [Recovered/Resolved]
  - Dry mouth [Unknown]
  - Dry eye [Unknown]
  - Diarrhoea [Unknown]
  - Constipation [Unknown]
  - Dry skin [Unknown]
  - Alopecia [Unknown]
